FAERS Safety Report 24403810 (Version 1)
Quarter: 2024Q4

REPORT INFORMATION
  Report Type: Report from Study
  Country: AU (occurrence: AU)
  Receive Date: 20241007
  Receipt Date: 20241007
  Transmission Date: 20250115
  Serious: No
  Sender: ROCHE
  Company Number: AU-ROCHE-3460187

PATIENT
  Sex: Female
  Weight: 75.0 kg

DRUGS (1)
  1. GAZYVA [Suspect]
     Active Substance: OBINUTUZUMAB
     Indication: Glomerulonephritis membranous
     Dosage: IN WEEK 0, WEEK 2, WEEK 24, WEEK 26, 1000MG, DAYS 0 AND 14, REPEATED AT 6 MONTHS? FREQUENCY TEXT:IN
     Route: 042

REACTIONS (2)
  - Off label use [Unknown]
  - No adverse event [Unknown]
